FAERS Safety Report 6533810-5 (Version None)
Quarter: 2010Q1

REPORT INFORMATION
  Report Type: 
  Country: None (occurrence: None)
  Receive Date: 20100111
  Receipt Date: 20090217
  Transmission Date: 20100710
  Serious: No
  Sender: FDA-Public Use
  Company Number: US-ABBOTT-09P-163-0558231-00

PATIENT
  Sex: Female
  Weight: 53.572 kg

DRUGS (4)
  1. VICODIN [Suspect]
     Indication: INTERVERTEBRAL DISC PROTRUSION
     Dates: start: 20090101, end: 20090101
  2. VICODIN [Suspect]
     Indication: BONE PAIN
  3. TRAMADOL HCL [Concomitant]
     Indication: DRUG USE FOR UNKNOWN INDICATION
  4. SANCTURA [Concomitant]
     Indication: DRUG USE FOR UNKNOWN INDICATION

REACTIONS (1)
  - CONSTIPATION [None]
